FAERS Safety Report 23015981 (Version 1)
Quarter: 2023Q4

REPORT INFORMATION
  Report Type: Spontaneous
  Country: US (occurrence: None)
  Receive Date: 20231001
  Receipt Date: 20231001
  Transmission Date: 20240110
  Serious: Yes (Hospitalization)
  Sender: FDA-Public Use
  Company Number: None

PATIENT
  Age: 63 Year
  Sex: Female
  Weight: 76.5 kg

DRUGS (5)
  1. REPATHA [Suspect]
     Active Substance: EVOLOCUMAB
     Indication: Blood cholesterol
     Dosage: OTHER QUANTITY : 1 INJECTION(S);?OTHER FREQUENCY : ONCE EVERY 2WKS;?
     Route: 058
     Dates: start: 20230819, end: 20230819
  2. REPATHA [Suspect]
     Active Substance: EVOLOCUMAB
     Indication: Brain injury
  3. REPATHA [Suspect]
     Active Substance: EVOLOCUMAB
     Indication: COVID-19
  4. PLAVIX [Concomitant]
     Active Substance: CLOPIDOGREL BISULFATE
  5. VITAMINS [Concomitant]
     Active Substance: VITAMINS

REACTIONS (4)
  - Chest discomfort [None]
  - Muscle spasms [None]
  - Lip swelling [None]
  - Vulvovaginal swelling [None]

NARRATIVE: CASE EVENT DATE: 20230819
